FAERS Safety Report 26025704 (Version 2)
Quarter: 2025Q4

REPORT INFORMATION
  Report Type: Report from Study
  Country: CN (occurrence: CN)
  Receive Date: 20251111
  Receipt Date: 20251224
  Transmission Date: 20260117
  Serious: Yes (Other)
  Sender: ROCHE
  Company Number: CN-ROCHE-3476555

PATIENT
  Age: 48 Year
  Sex: Male

DRUGS (78)
  1. POLATUZUMAB VEDOTIN [Suspect]
     Active Substance: POLATUZUMAB VEDOTIN
     Indication: Diffuse large B-cell lymphoma
     Dosage: FREQUENCY TEXT:ONCE
     Route: 041
     Dates: end: 20231115
  2. POLATUZUMAB VEDOTIN [Suspect]
     Active Substance: POLATUZUMAB VEDOTIN
     Dosage: FREQUENCY TEXT:ONCE
     Route: 041
     Dates: start: 20231116, end: 20231116
  3. POLATUZUMAB VEDOTIN [Suspect]
     Active Substance: POLATUZUMAB VEDOTIN
     Route: 041
     Dates: start: 20231204, end: 20231204
  4. RITUXIMAB [Suspect]
     Active Substance: RITUXIMAB
     Indication: Diffuse large B-cell lymphoma
     Route: 042
     Dates: start: 20231119, end: 20231119
  5. RITUXIMAB [Suspect]
     Active Substance: RITUXIMAB
     Route: 042
     Dates: end: 20231118
  6. CYCLOPHOSPHAMIDE [Suspect]
     Active Substance: CYCLOPHOSPHAMIDE
     Indication: Diffuse large B-cell lymphoma
     Route: 041
     Dates: end: 20231113
  7. CYCLOPHOSPHAMIDE [Suspect]
     Active Substance: CYCLOPHOSPHAMIDE
     Route: 041
     Dates: start: 20231114, end: 20231114
  8. CYCLOPHOSPHAMIDE [Suspect]
     Active Substance: CYCLOPHOSPHAMIDE
     Route: 042
     Dates: start: 20231204, end: 20231204
  9. DOXORUBICIN HYDROCHLORIDE [Suspect]
     Active Substance: DOXORUBICIN HYDROCHLORIDE
     Indication: Diffuse large B-cell lymphoma
     Route: 042
     Dates: end: 20231117
  10. DOXORUBICIN HYDROCHLORIDE [Suspect]
     Active Substance: DOXORUBICIN HYDROCHLORIDE
     Route: 042
     Dates: start: 20231204, end: 20231204
  11. PREDNISONE [Suspect]
     Active Substance: PREDNISONE
     Indication: Diffuse large B-cell lymphoma
  12. PREDNISONE [Suspect]
     Active Substance: PREDNISONE
     Route: 048
     Dates: end: 20231209
  13. RITUXIMAB [Suspect]
     Active Substance: RITUXIMAB
     Indication: Diffuse large B-cell lymphoma
     Route: 042
     Dates: end: 20231205
  14. Bifidobacterium tetrad [Concomitant]
  15. POVIDONE-IODINE [Concomitant]
     Active Substance: POVIDONE-IODINE
  16. COMPOUND CHLORHEXIDINE GARGLE [Concomitant]
  17. AMMONIUM GLYCYRRHIZATE\CYSTEINE [Concomitant]
     Active Substance: AMMONIUM GLYCYRRHIZATE\CYSTEINE
  18. HUMAN IMMUNOGLOBULIN G [Concomitant]
     Active Substance: HUMAN IMMUNOGLOBULIN G
  19. DOXORUBICIN HYDROCHLORIDE [Concomitant]
     Active Substance: DOXORUBICIN HYDROCHLORIDE
     Route: 042
     Dates: start: 20231204, end: 20231204
  20. ENTECAVIR [Concomitant]
     Active Substance: ENTECAVIR
     Dosage: 1 TABLET
     Route: 048
     Dates: start: 20231113, end: 20231129
  21. POLAPREZINC [Concomitant]
     Active Substance: POLAPREZINC
  22. DOXORUBICIN HYDROCHLORIDE [Concomitant]
     Active Substance: DOXORUBICIN HYDROCHLORIDE
     Route: 042
     Dates: start: 20231117, end: 20231117
  23. DOXORUBICIN HYDROCHLORIDE [Concomitant]
     Active Substance: DOXORUBICIN HYDROCHLORIDE
     Route: 042
     Dates: start: 20231204, end: 20231204
  24. PREDNISONE ACETATE [Concomitant]
     Active Substance: PREDNISONE ACETATE
     Route: 048
     Dates: start: 20231205, end: 20231209
  25. syklofosfamid ampoule [Concomitant]
     Route: 042
     Dates: start: 20231204, end: 20231204
  26. TORSEMIDE [Concomitant]
     Active Substance: TORSEMIDE
     Route: 042
     Dates: start: 20231111, end: 20231111
  27. TORSEMIDE [Concomitant]
     Active Substance: TORSEMIDE
     Route: 042
     Dates: start: 20231113, end: 20231113
  28. TORSEMIDE [Concomitant]
     Active Substance: TORSEMIDE
     Route: 042
     Dates: start: 20231120, end: 20231120
  29. MICAFUNGIN SODIUM [Concomitant]
     Active Substance: MICAFUNGIN SODIUM
     Route: 041
     Dates: start: 20231112, end: 20231120
  30. MICAFUNGIN SODIUM [Concomitant]
     Active Substance: MICAFUNGIN SODIUM
     Route: 041
     Dates: start: 20231111, end: 20231111
  31. tathion injection [Concomitant]
  32. Compound glycyrrhizin [Concomitant]
     Dosage: 2 UNKNOWN
     Route: 041
     Dates: start: 20231111, end: 20231117
  33. Sodium diisopropylamine dichloroacetate [Concomitant]
  34. Insulin Human inj [Concomitant]
     Route: 041
     Dates: start: 20231112, end: 20231114
  35. Insulin Human inj [Concomitant]
     Route: 041
     Dates: start: 20231111, end: 20231111
  36. SODIUM BICARBONATE [Concomitant]
     Active Substance: SODIUM BICARBONATE
     Dosage: OTHER MEDICATION FREQUENCY  Q6H5
     Route: 041
     Dates: start: 20231112, end: 20231121
  37. SODIUM BICARBONATE [Concomitant]
     Active Substance: SODIUM BICARBONATE
     Route: 041
     Dates: start: 20231111, end: 20231111
  38. ESOMEPRAZOLE SODIUM [Concomitant]
     Active Substance: ESOMEPRAZOLE SODIUM
     Dosage: OTHER MEDICATION FREQUENCY  Q6H5
     Route: 041
     Dates: start: 20231111, end: 20231120
  39. ESOMEPRAZOLE SODIUM [Concomitant]
     Active Substance: ESOMEPRAZOLE SODIUM
     Dosage: OTHER MEDICATION FREQUENCY  Q6H5
     Route: 041
  40. Piperacillin sodium Tazobactam sodium for injection [Concomitant]
  41. LECITHIN [Concomitant]
     Active Substance: LECITHIN
     Route: 041
     Dates: start: 20231112, end: 20231117
  42. METOCLOPRAMIDE [Concomitant]
     Active Substance: METOCLOPRAMIDE
     Route: 048
     Dates: start: 20231113, end: 20231113
  43. ACETYLCYSTEINE [Concomitant]
     Active Substance: ACETYLCYSTEINE
     Route: 041
     Dates: start: 20231113, end: 20231120
  44. OCTREOTIDE ACETATE [Concomitant]
     Active Substance: OCTREOTIDE ACETATE
     Dosage: OTHER MEDICATION FREQUENCY  Q8H
     Route: 041
     Dates: start: 20231113, end: 20231113
  45. hydrotalcite chewable tablets [Concomitant]
     Route: 048
     Dates: start: 20231113, end: 20231121
  46. ALBUMIN HUMAN [Concomitant]
     Active Substance: ALBUMIN HUMAN
     Route: 042
     Dates: start: 20231111, end: 20231111
  47. ALBUMIN HUMAN [Concomitant]
     Active Substance: ALBUMIN HUMAN
     Route: 042
     Dates: start: 20231112, end: 20231112
  48. DEXAMETHASONE SODIUM PHOSPHATE [Concomitant]
     Active Substance: DEXAMETHASONE SODIUM PHOSPHATE
     Route: 042
     Dates: start: 20231111, end: 20231111
  49. DEXAMETHASONE SODIUM PHOSPHATE [Concomitant]
     Active Substance: DEXAMETHASONE SODIUM PHOSPHATE
     Route: 042
     Dates: start: 20231112, end: 20231112
  50. DEXAMETHASONE SODIUM PHOSPHATE [Concomitant]
     Active Substance: DEXAMETHASONE SODIUM PHOSPHATE
     Route: 042
     Dates: start: 20231113, end: 20231113
  51. DEXAMETHASONE SODIUM PHOSPHATE [Concomitant]
     Active Substance: DEXAMETHASONE SODIUM PHOSPHATE
     Route: 042
     Dates: start: 20231119, end: 20231119
  52. AZITHROMYCIN [Concomitant]
     Active Substance: AZITHROMYCIN
     Route: 048
     Dates: start: 20231113, end: 20231113
  53. LIDOCAINE HYDROCHLORIDE [Concomitant]
     Active Substance: LIDOCAINE HYDROCHLORIDE
     Route: 042
     Dates: start: 20231113, end: 20231113
  54. POTASSIUM CHLORIDE [Concomitant]
     Active Substance: POTASSIUM CHLORIDE
     Route: 041
     Dates: start: 20231114, end: 20231115
  55. POTASSIUM CHLORIDE [Concomitant]
     Active Substance: POTASSIUM CHLORIDE
     Route: 041
     Dates: start: 20231113, end: 20231113
  56. POTASSIUM CHLORIDE [Concomitant]
     Active Substance: POTASSIUM CHLORIDE
     Route: 041
     Dates: start: 20231120, end: 20231120
  57. CALCIUM GLUCONATE [Concomitant]
     Active Substance: CALCIUM GLUCONATE
     Route: 041
     Dates: start: 20231114, end: 20231115
  58. GLYCOSAMINOGLYCANS [Concomitant]
     Active Substance: GLYCOSAMINOGLYCANS
     Dates: start: 20231114, end: 20231114
  59. FEBUXOSTAT [Concomitant]
     Active Substance: FEBUXOSTAT
     Route: 048
     Dates: start: 20231115, end: 20231115
  60. DIPHENHYDRAMINE [Concomitant]
     Active Substance: DIPHENHYDRAMINE
     Route: 048
     Dates: start: 20231116, end: 20231119
  61. METHYLPREDNISOLONE SODIUM SUCCINATE [Concomitant]
     Active Substance: METHYLPREDNISOLONE SODIUM SUCCINATE
     Route: 041
     Dates: start: 20231117, end: 20231117
  62. PEGYLATED RECOMBINANT HUMAN GRANULOCYTE COLONY STIMULATING FACTOR [Concomitant]
     Route: 058
     Dates: start: 20231120, end: 20231120
  63. Esomeprazole enteric capsule [Concomitant]
     Route: 048
     Dates: start: 20231120, end: 20231129
  64. PROMETHAZINE HYDROCHLORIDE [Concomitant]
     Active Substance: PROMETHAZINE HYDROCHLORIDE
  65. CEFTRIAXONE SODIUM [Concomitant]
     Active Substance: CEFTRIAXONE SODIUM
  66. DEXTROSE\SODIUM CHLORIDE [Concomitant]
     Active Substance: DEXTROSE\SODIUM CHLORIDE
  67. FLURBIPROFEN AXETIL [Concomitant]
     Active Substance: FLURBIPROFEN AXETIL
  68. CHLORPROMAZINE HYDROCHLORIDE [Concomitant]
     Active Substance: CHLORPROMAZINE HYDROCHLORIDE
  69. TROPISETRON HYDROCHLORIDE [Concomitant]
     Active Substance: TROPISETRON HYDROCHLORIDE
  70. HYDROXYETHYL STARCH ELECTROLYTE [Concomitant]
  71. IBUPROFEN [Concomitant]
     Active Substance: IBUPROFEN
  72. SUCCINYLATED GELATIN [Concomitant]
     Active Substance: SUCCINYLATED GELATIN
  73. SODIUM CHLORIDE [Concomitant]
     Active Substance: SODIUM CHLORIDE
  74. DEXTROSE [Concomitant]
     Active Substance: DEXTROSE MONOHYDRATE
  75. HUMAN INTERLEUKIN-2 [Concomitant]
     Active Substance: HUMAN INTERLEUKIN-2
  76. MESNA [Concomitant]
     Active Substance: MESNA
  77. Polyethylene glycol recombinant human granulocytic stimulating factor [Concomitant]
  78. omeprazole enteric-coated capsules [Concomitant]

REACTIONS (5)
  - Anaemia [Recovered/Resolved]
  - Hypokalaemia [Recovered/Resolved]
  - Hypocalcaemia [Recovered/Resolved]
  - Anaemia [Recovered/Resolved]
  - Haemorrhoids [Not Recovered/Not Resolved]

NARRATIVE: CASE EVENT DATE: 20231114
